FAERS Safety Report 21581383 (Version 2)
Quarter: 2022Q4

REPORT INFORMATION
  Report Type: Spontaneous
  Country: CA (occurrence: CA)
  Receive Date: 20221111
  Receipt Date: 20221208
  Transmission Date: 20230112
  Serious: Yes (Other)
  Sender: FDA-Public Use
  Company Number: CA-CELLTRION INC.-2022CA005777

PATIENT

DRUGS (10)
  1. INFLECTRA [Suspect]
     Active Substance: INFLIXIMAB-DYYB
     Indication: Crohn^s disease
     Dosage: 500 MG, WEEK 0,2,6, THE EVERY 4 WEEKS
     Route: 042
     Dates: start: 20220314
  2. INFLECTRA [Suspect]
     Active Substance: INFLIXIMAB-DYYB
     Dosage: 500 MG, WEEK 0,2,6, THEN EVERY 8 WEEKS
     Route: 042
     Dates: start: 20220330
  3. INFLECTRA [Suspect]
     Active Substance: INFLIXIMAB-DYYB
     Dosage: 500 MG, WEEK 0,2,6, THEN EVERY 8 WEEKS
     Route: 042
     Dates: start: 20220513
  4. INFLECTRA [Suspect]
     Active Substance: INFLIXIMAB-DYYB
     Dosage: 500 MG, WEEK 0,2,6, THEN EVERY 4 WEEKS
     Route: 042
     Dates: start: 20220609
  5. INFLECTRA [Suspect]
     Active Substance: INFLIXIMAB-DYYB
     Dosage: 500 MG, WEEK 0,2,6, THEN EVERY 4 WEEKS
     Route: 042
     Dates: start: 20220705, end: 20220705
  6. INFLECTRA [Suspect]
     Active Substance: INFLIXIMAB-DYYB
     Dosage: 500 MG, WEEK 0,2,6, THEN EVERY 4 WEEKS
     Route: 042
     Dates: start: 20220803
  7. INFLECTRA [Suspect]
     Active Substance: INFLIXIMAB-DYYB
     Dosage: 500 MG, WEEK 0,2,6, THEN EVERY 4 WEEKS
     Route: 042
     Dates: start: 20220901
  8. INFLECTRA [Suspect]
     Active Substance: INFLIXIMAB-DYYB
     Dosage: 500 MG, WEEK 0,2,6, THEN EVERY 4 WEEKS
     Route: 042
     Dates: start: 20221027
  9. INFLECTRA [Suspect]
     Active Substance: INFLIXIMAB-DYYB
     Dosage: 500 MG, WEEK 0,2,6, THEN EVERY 4 WEEKS
     Route: 042
     Dates: start: 20221125
  10. PREDNISONE [Concomitant]
     Active Substance: PREDNISONE
     Dosage: UNK

REACTIONS (17)
  - Haematochezia [Not Recovered/Not Resolved]
  - Anal abscess [Unknown]
  - Cough [Recovered/Resolved]
  - Throat irritation [Recovered/Resolved]
  - Weight increased [Unknown]
  - Weight decreased [Not Recovered/Not Resolved]
  - Abdominal symptom [Not Recovered/Not Resolved]
  - Loss of personal independence in daily activities [Unknown]
  - Pain [Unknown]
  - Nodule [Not Recovered/Not Resolved]
  - Tenderness [Unknown]
  - Anorectal discomfort [Not Recovered/Not Resolved]
  - Anal fistula [Unknown]
  - Off label use [Unknown]
  - Off label use [Unknown]
  - Intentional product use issue [Unknown]
  - Inappropriate schedule of product administration [Unknown]

NARRATIVE: CASE EVENT DATE: 20220101
